FAERS Safety Report 6370869-2 (Version None)
Quarter: 2009Q3

REPORT INFORMATION
  Report Type: 
  Country: None (occurrence: None)
  Receive Date: 20090923
  Receipt Date: 20070712
  Transmission Date: 20100115
  Serious: No
  Sender: FDA-Public Use
  Company Number: US-ASTRAZENECA-2006UW24098

PATIENT
  Age: 39 Year
  Sex: Male
  Weight: 97.1 kg

DRUGS (40)
  1. SEROQUEL [Suspect]
     Indication: BIPOLAR DISORDER
     Route: 048
     Dates: start: 20000101, end: 20070101
  2. SEROQUEL [Suspect]
     Indication: DEPRESSION
     Route: 048
     Dates: start: 20000101, end: 20070101
  3. SEROQUEL [Suspect]
     Indication: SCHIZOAFFECTIVE DISORDER
     Route: 048
     Dates: start: 20000101, end: 20070101
  4. SEROQUEL [Suspect]
     Indication: AFFECTIVE DISORDER
     Route: 048
     Dates: start: 20000101, end: 20070101
  5. SEROQUEL [Suspect]
     Indication: ANXIETY
     Route: 048
     Dates: start: 20000101, end: 20070101
  6. SEROQUEL [Suspect]
     Route: 048
     Dates: start: 20001101, end: 20010601
  7. SEROQUEL [Suspect]
     Route: 048
     Dates: start: 20001101, end: 20010601
  8. SEROQUEL [Suspect]
     Route: 048
     Dates: start: 20001101, end: 20010601
  9. SEROQUEL [Suspect]
     Route: 048
     Dates: start: 20001101, end: 20010601
  10. SEROQUEL [Suspect]
     Route: 048
     Dates: start: 20001101, end: 20010601
  11. SEROQUEL [Suspect]
     Route: 048
     Dates: start: 20070105
  12. SEROQUEL [Suspect]
     Route: 048
     Dates: start: 20070105
  13. SEROQUEL [Suspect]
     Route: 048
     Dates: start: 20070105
  14. SEROQUEL [Suspect]
     Route: 048
     Dates: start: 20070105
  15. SEROQUEL [Suspect]
     Route: 048
     Dates: start: 20070105
  16. SEROQUEL [Suspect]
     Dosage: 25MG-800MG
     Route: 048
     Dates: start: 19991108
  17. SEROQUEL [Suspect]
     Dosage: 25MG-800MG
     Route: 048
     Dates: start: 19991108
  18. SEROQUEL [Suspect]
     Dosage: 25MG-800MG
     Route: 048
     Dates: start: 19991108
  19. SEROQUEL [Suspect]
     Dosage: 25MG-800MG
     Route: 048
     Dates: start: 19991108
  20. SEROQUEL [Suspect]
     Dosage: 25MG-800MG
     Route: 048
     Dates: start: 19991108
  21. ABILIFY [Concomitant]
     Dates: start: 20060601
  22. ABILIFY [Concomitant]
     Dosage: 15 MG - 30 MG
     Dates: start: 20050111
  23. GEODON [Concomitant]
     Dates: start: 20060601, end: 20070101
  24. THORAZINE [Concomitant]
     Dates: start: 20060601
  25. ZYPREXA [Concomitant]
     Dates: start: 20010101, end: 20010701
  26. ZYPREXA [Concomitant]
     Dosage: 10 MG - 20 MG
     Dates: start: 19981028
  27. KLONOPIN [Concomitant]
     Dates: start: 19970101
  28. KLONOPIN [Concomitant]
     Dosage: 0.25 MG - 3 MG
     Dates: start: 19971223
  29. TRAZODONE [Concomitant]
     Dosage: 100MG-400MG
     Dates: start: 19971202
  30. PROZAC [Concomitant]
     Dosage: 10 MG - 40 MG
     Dates: start: 20000424
  31. ALTACE [Concomitant]
     Dates: start: 20050111
  32. SINGULAIR [Concomitant]
     Dates: start: 20001006
  33. REMERON [Concomitant]
     Dosage: 7.5 MG - 60 MG
     Dates: start: 19981103
  34. TEGRETOL [Concomitant]
     Dosage: 100 MG - 600 MG
     Dates: start: 19971027, end: 20001226
  35. DEPAKOTE [Concomitant]
     Indication: HYPOMANIA
     Dosage: 1525 MG - 500 MG
     Dates: start: 19981028
  36. PAXIL [Concomitant]
     Dates: start: 20010319
  37. RISPERDAL [Concomitant]
     Dates: start: 19971229
  38. ZOLOFT [Concomitant]
     Dosage: 50 MG - 75 MG
     Dates: start: 19971027
  39. LAMICTAL [Concomitant]
     Dates: start: 20050111
  40. BUSPAR [Concomitant]
     Dates: start: 19971229

REACTIONS (5)
  - BLOOD CHOLESTEROL INCREASED [None]
  - DIABETES MELLITUS [None]
  - MIXED HYPERLIPIDAEMIA [None]
  - OBESITY [None]
  - TYPE 2 DIABETES MELLITUS [None]
